FAERS Safety Report 5415901-5 (Version None)
Quarter: 2007Q3

REPORT INFORMATION
  Report Type: 
  Country: None (occurrence: None)
  Receive Date: 20070815
  Receipt Date: 20070806
  Transmission Date: 20080115
  Serious: Yes (Other)
  Sender: FDA-Public Use
  Company Number: SE-PFIZER INC-2007064430

PATIENT
  Sex: Female

DRUGS (7)
  1. CELEBRA [Suspect]
     Indication: BACK PAIN
     Dosage: DAILY DOSE:100MG
     Route: 048
  2. CITALOPRAM HYDROBROMIDE [Concomitant]
  3. OMEPRAZOLE [Concomitant]
  4. TRYPTIZOL [Concomitant]
  5. VENTOLIN [Concomitant]
  6. PULMICORT [Concomitant]
  7. LINATIL [Concomitant]

REACTIONS (1)
  - ASTHMA [None]
